FAERS Safety Report 8094177-7 (Version None)
Quarter: 2012Q1

REPORT INFORMATION
  Report Type: 
  Country: None (occurrence: None)
  Receive Date: 20120130
  Receipt Date: 20120130
  Transmission Date: 20120608
  Serious: Yes (Other)
  Sender: FDA-Public Use
  Company Number: None

PATIENT
  Age: 62 Year
  Sex: Female
  Weight: 79.378 kg

DRUGS (1)
  1. MITOMYCIN [Suspect]
     Indication: CHEMOTHERAPY
     Dosage: 45 MG INSTILLATION IN BLADDER
     Route: 043
     Dates: start: 20111122, end: 20111122

REACTIONS (4)
  - BRONCHITIS [None]
  - CYSTITIS [None]
  - PYREXIA [None]
  - VAGINAL INFECTION [None]
